FAERS Safety Report 8606686-X (Version None)
Quarter: 2012Q3

REPORT INFORMATION
  Report Type: 
  Country: None (occurrence: None)
  Receive Date: 20120820
  Receipt Date: 20120809
  Transmission Date: 20120928
  Serious: Yes (Hospitalization)
  Sender: FDA-Public Use
  Company Number: KR-ELI_LILLY_AND_COMPANY-KR201208001542

PATIENT
  Age: 69 Year
  Sex: Male

DRUGS (3)
  1. HUMALOG MIX 50/50 [Suspect]
     Indication: TYPE 2 DIABETES MELLITUS
     Dosage: 14 U, BID
     Route: 058
     Dates: start: 20120718
  2. HUMALOG MIX 50/50 [Suspect]
     Dosage: 10 U, QD
     Route: 058
     Dates: start: 20120718, end: 20120726
  3. HUMALOG MIX 50/50 [Suspect]
     Dosage: 8 U, QD
     Route: 058
     Dates: start: 20120726

REACTIONS (2)
  - PNEUMONIA [None]
  - BLOOD GLUCOSE DECREASED [None]
